FAERS Safety Report 24964070 (Version 1)
Quarter: 2025Q1

REPORT INFORMATION
  Report Type: Other
  Country: AU (occurrence: AU)
  Receive Date: 20250213
  Receipt Date: 20250213
  Transmission Date: 20250409
  Serious: Yes (Other)
  Sender: LUPIN
  Company Number: AU-LUPIN PHARMACEUTICALS INC.-2025-01200

PATIENT
  Age: 86 Year
  Sex: Female

DRUGS (5)
  1. CELECOXIB [Interacting]
     Active Substance: CELECOXIB
     Indication: Product used for unknown indication
     Route: 065
  2. CLOPIDOGREL [Interacting]
     Active Substance: CLOPIDOGREL BISULFATE
     Indication: Product used for unknown indication
     Route: 065
  3. BUDESONIDE [Concomitant]
     Active Substance: BUDESONIDE
     Indication: Product used for unknown indication
     Route: 065
  4. FUROSEMIDE [Concomitant]
     Active Substance: FUROSEMIDE
     Indication: Product used for unknown indication
     Route: 065
  5. RANITIDINE [Concomitant]
     Active Substance: RANITIDINE
     Indication: Product used for unknown indication
     Route: 065

REACTIONS (11)
  - Vomiting [Unknown]
  - Brain oedema [Unknown]
  - Cerebral haemorrhage [Unknown]
  - Confusional state [Unknown]
  - Drug interaction [Unknown]
  - Headache [Unknown]
  - Hemianopia homonymous [Unknown]
  - Hemiparesis [Unknown]
  - Nausea [Unknown]
  - Subarachnoid haemorrhage [Unknown]
  - Vision blurred [Unknown]
